FAERS Safety Report 16927664 (Version 1)
Quarter: 2019Q4

REPORT INFORMATION
  Report Type: Spontaneous
  Country: US (occurrence: US)
  Receive Date: 20191016
  Receipt Date: 20191016
  Transmission Date: 20200122
  Serious: No
  Sender: FDA-Public Use
  Company Number: US-TEVA-2019-US-1122198

PATIENT
  Sex: Female

DRUGS (10)
  1. CLONAZEPAM ACTAVIS YELLOW [Suspect]
     Active Substance: CLONAZEPAM
     Indication: BIPOLAR DISORDER
  2. CLONAZEPAM ACTAVIS YELLOW [Suspect]
     Active Substance: CLONAZEPAM
     Indication: SCHIZOPHRENIA
  3. CLONAZEPAM ACTAVIS YELLOW [Suspect]
     Active Substance: CLONAZEPAM
     Indication: INTERMITTENT EXPLOSIVE DISORDER
  4. CLONAZEPAM ACTAVIS YELLOW [Suspect]
     Active Substance: CLONAZEPAM
     Indication: ANXIETY
     Dosage: DOSE STRENGTH:  1
     Route: 065
  5. CLONAZEPAM BLUE [Suspect]
     Active Substance: CLONAZEPAM
     Indication: BIPOLAR DISORDER
  6. CLONAZEPAM BLUE [Suspect]
     Active Substance: CLONAZEPAM
     Indication: INTERMITTENT EXPLOSIVE DISORDER
  7. CLONAZEPAM BLUE [Suspect]
     Active Substance: CLONAZEPAM
     Indication: ANXIETY
     Route: 065
  8. CLONAZEPAM BLUE [Suspect]
     Active Substance: CLONAZEPAM
     Indication: SCHIZOPHRENIA
  9. CLONAZEPAM ACTAVIS YELLOW [Suspect]
     Active Substance: CLONAZEPAM
     Indication: PANIC DISORDER
  10. CLONAZEPAM BLUE [Suspect]
     Active Substance: CLONAZEPAM
     Indication: PANIC DISORDER

REACTIONS (1)
  - Withdrawal syndrome [Unknown]
